FAERS Safety Report 13636856 (Version 1)
Quarter: 2017Q2

REPORT INFORMATION
  Report Type: Spontaneous
  Country: US (occurrence: US)
  Receive Date: 20170609
  Receipt Date: 20170609
  Transmission Date: 20170830
  Serious: No
  Sender: FDA-Public Use
  Company Number: US-PFIZER INC-2017250075

PATIENT
  Sex: Female

DRUGS (1)
  1. THROMBIN [Suspect]
     Active Substance: THROMBIN
     Dosage: UNK
     Dates: start: 201107

REACTIONS (2)
  - Drug hypersensitivity [Unknown]
  - Urticaria [Unknown]
